FAERS Safety Report 5730020-6 (Version None)
Quarter: 2008Q2

REPORT INFORMATION
  Report Type: 
  Country: None (occurrence: None)
  Receive Date: 20080507
  Receipt Date: 20080428
  Transmission Date: 20081010
  Serious: Yes (Other)
  Sender: FDA-Public Use
  Company Number: US-JNJFOC-20070901131

PATIENT
  Sex: Male
  Weight: 67.13 kg

DRUGS (8)
  1. FENTANYL TRANSDERMAL SYSTEM [Suspect]
     Indication: FIBROMYALGIA
     Route: 062
  2. FENTANYL TRANSDERMAL SYSTEM [Suspect]
     Indication: PAIN
     Route: 062
  3. FENTANYL TRANSDERMAL SYSTEM [Suspect]
     Indication: PAIN
     Route: 062
  4. ZANAFLEX [Concomitant]
     Indication: NEUROPATHY PERIPHERAL
     Dosage: 1 OR 2 TABLETS
     Route: 048
  5. DILANTIN [Concomitant]
     Indication: CONVULSION
     Route: 048
  6. CYMBALTA [Concomitant]
     Indication: SLEEP DISORDER
     Dosage: 1 TABLET DAILY
     Route: 048
  7. SYNTHROID [Concomitant]
     Indication: THYROID DISORDER
     Route: 048
  8. TIZANIDINE HCL [Concomitant]
     Indication: BREAKTHROUGH PAIN
     Dosage: 2 TO 3 TIMES DAILY AS NEEDED
     Route: 048

REACTIONS (5)
  - ABNORMAL BEHAVIOUR [None]
  - GROWTH HORMONE-PRODUCING PITUITARY TUMOUR [None]
  - INSOMNIA [None]
  - PHARMACEUTICAL PRODUCT COMPLAINT [None]
  - PITUITARY TUMOUR RECURRENT [None]
